FAERS Safety Report 24881922 (Version 1)
Quarter: 2025Q1

REPORT INFORMATION
  Report Type: Spontaneous
  Country: CN (occurrence: CN)
  Receive Date: 20250124
  Receipt Date: 20250124
  Transmission Date: 20250409
  Serious: Yes (Death, Hospitalization)
  Sender: STRIDES
  Company Number: CN-STRIDES ARCOLAB LIMITED-2025SP001108

PATIENT
  Age: 67 Year
  Sex: Male

DRUGS (17)
  1. SUCRALFATE [Suspect]
     Active Substance: SUCRALFATE
     Indication: Duodenal ulcer
     Route: 048
  2. PERIPLANETA AMERICANA [Suspect]
     Active Substance: PERIPLANETA AMERICANA
     Indication: Duodenal ulcer
     Route: 048
  3. TEPRENONE [Suspect]
     Active Substance: TEPRENONE
     Indication: Duodenal ulcer
     Route: 048
  4. RABEPRAZOLE [Suspect]
     Active Substance: RABEPRAZOLE
     Indication: Duodenal ulcer
     Route: 048
  5. FIBRINOGEN HUMAN [Concomitant]
     Active Substance: FIBRINOGEN HUMAN
     Indication: Gastrointestinal haemorrhage
     Route: 042
  6. ILAPRAZOLE [Concomitant]
     Active Substance: ILAPRAZOLE
     Indication: Haematemesis
     Route: 065
  7. SOMATOSTATIN [Concomitant]
     Active Substance: SOMATOSTATIN
     Indication: Haematemesis
     Route: 065
  8. METARAMINOL BITARTRATE [Concomitant]
     Active Substance: METARAMINOL BITARTRATE
     Indication: Haematemesis
     Route: 065
  9. OXALIPLATIN [Concomitant]
     Active Substance: OXALIPLATIN
     Indication: Cholangiocarcinoma
     Route: 065
  10. GEMCITABINE [Concomitant]
     Active Substance: GEMCITABINE
     Indication: Cholangiocarcinoma
     Route: 065
  11. CAMRELIZUMAB [Concomitant]
     Active Substance: CAMRELIZUMAB
     Indication: Cholangiocarcinoma
     Route: 041
  12. RIVOCERANIB [Concomitant]
     Active Substance: RIVOCERANIB
     Indication: Cholangiocarcinoma
     Route: 048
  13. BEVACIZUMAB [Concomitant]
     Active Substance: BEVACIZUMAB
     Indication: Cholangiocarcinoma
     Route: 065
  14. BEVACIZUMAB [Concomitant]
     Active Substance: BEVACIZUMAB
     Route: 042
  15. DIPHENHYDRAMINE [Concomitant]
     Active Substance: DIPHENHYDRAMINE
     Indication: Rash
     Route: 065
  16. Hetrombopag [Concomitant]
     Indication: Thrombocytopenia
     Route: 065
  17. RECOMBINANT HUMAN THROMBOPOIETIN [Concomitant]
     Active Substance: RECOMBINANT HUMAN THROMBOPOIETIN
     Indication: Thrombocytopenia
     Route: 065

REACTIONS (1)
  - Drug ineffective [Fatal]
